FAERS Safety Report 21437859 (Version 2)
Quarter: 2022Q4

REPORT INFORMATION
  Report Type: Report from Study
  Country: US (occurrence: US)
  Receive Date: 20221011
  Receipt Date: 20221013
  Transmission Date: 20230112
  Serious: No
  Sender: FDA-Public Use
  Company Number: US-ABBVIE-4147226

PATIENT
  Sex: Male

DRUGS (2)
  1. SKYRIZI [Suspect]
     Active Substance: RISANKIZUMAB-RZAA
     Indication: Psoriasis
     Route: 058
  2. SKYRIZI [Suspect]
     Active Substance: RISANKIZUMAB-RZAA
     Dosage: 150MG/ML
     Route: 058
     Dates: start: 20220830

REACTIONS (7)
  - Arthralgia [Unknown]
  - Sinus pain [Unknown]
  - Tooth infection [Unknown]
  - Sinus disorder [Unknown]
  - Ear pain [Unknown]
  - Ear disorder [Unknown]
  - Rash [Not Recovered/Not Resolved]
